FAERS Safety Report 5566696-6 (Version None)
Quarter: 2007Q4

REPORT INFORMATION
  Report Type: 
  Country: None (occurrence: None)
  Receive Date: 20071219
  Receipt Date: 20071218
  Transmission Date: 20080405
  Serious: Yes (Life-Threatening)
  Sender: FDA-Public Use
  Company Number: JP-MERCK-0605USA01937

PATIENT
  Age: 72 Year
  Sex: Female
  Weight: 53 kg

DRUGS (28)
  1. DECADRON [Suspect]
     Indication: PROPHYLAXIS OF NAUSEA AND VOMITING
     Route: 048
     Dates: start: 20050901
  2. DECADRON [Suspect]
     Route: 048
     Dates: start: 20050901
  3. DECADRON [Suspect]
     Route: 048
     Dates: start: 20050901
  4. DECADRON [Suspect]
     Route: 048
     Dates: start: 20050901
  5. DECADRON [Suspect]
     Route: 048
     Dates: start: 20050922
  6. DECADRON [Suspect]
     Route: 048
     Dates: start: 20050922
  7. DECADRON [Suspect]
     Route: 048
     Dates: start: 20050922
  8. DECADRON [Suspect]
     Route: 048
     Dates: start: 20050922
  9. DECADRON [Suspect]
     Route: 048
     Dates: start: 20051013
  10. DECADRON [Suspect]
     Route: 048
     Dates: start: 20051013
  11. DECADRON [Suspect]
     Route: 048
     Dates: start: 20051013
  12. DECADRON [Suspect]
     Route: 048
     Dates: start: 20051013
  13. DECADRON [Suspect]
     Route: 048
     Dates: start: 20051104
  14. DECADRON [Suspect]
     Route: 048
     Dates: start: 20051104
  15. DECADRON [Suspect]
     Route: 048
     Dates: start: 20051104
  16. DECADRON [Suspect]
     Route: 048
     Dates: start: 20051104
  17. ADRIAMYCIN PFS [Suspect]
     Route: 042
     Dates: start: 20050901, end: 20050901
  18. ADRIAMYCIN PFS [Suspect]
     Route: 042
     Dates: start: 20050922, end: 20050922
  19. ADRIAMYCIN PFS [Suspect]
     Route: 042
     Dates: start: 20051013, end: 20051013
  20. ADRIAMYCIN PFS [Suspect]
     Route: 042
     Dates: start: 20051104, end: 20051104
  21. CYCLOPHOSPHAMIDE [Suspect]
     Indication: CHEMOTHERAPY
     Route: 042
     Dates: start: 20050901, end: 20050901
  22. CYCLOPHOSPHAMIDE [Suspect]
     Route: 042
     Dates: start: 20050922, end: 20050922
  23. CYCLOPHOSPHAMIDE [Suspect]
     Route: 042
     Dates: start: 20051013, end: 20051013
  24. CYCLOPHOSPHAMIDE [Suspect]
     Route: 042
     Dates: start: 20051104, end: 20051104
  25. NASEA [Concomitant]
     Route: 042
     Dates: start: 20050901, end: 20050901
  26. NASEA [Concomitant]
     Route: 042
     Dates: start: 20050922, end: 20050922
  27. NASEA [Concomitant]
     Route: 042
     Dates: start: 20051013, end: 20051013
  28. NASEA [Concomitant]
     Route: 042
     Dates: start: 20051104, end: 20051104

REACTIONS (1)
  - HEPATITIS [None]
